FAERS Safety Report 13961075 (Version 2)
Quarter: 2017Q4

REPORT INFORMATION
  Report Type: Spontaneous
  Country: US (occurrence: US)
  Receive Date: 20170912
  Receipt Date: 20171128
  Transmission Date: 20180320
  Serious: No
  Sender: FDA-Public Use
  Company Number: US-GLAXOSMITHKLINE-US2017137844

PATIENT
  Age: 18 Year
  Sex: Female

DRUGS (1)
  1. TRANSDERM SCOP [Suspect]
     Active Substance: SCOPOLAMINE
     Indication: DROOLING
     Dosage: UNK

REACTIONS (3)
  - Scratch [Unknown]
  - Product use in unapproved indication [Unknown]
  - Off label use [Unknown]
